FAERS Safety Report 7683779-5 (Version None)
Quarter: 2011Q3

REPORT INFORMATION
  Report Type: 
  Country: None (occurrence: None)
  Receive Date: 20110815
  Receipt Date: 20110804
  Transmission Date: 20111222
  Serious: Yes (Other)
  Sender: FDA-Public Use
  Company Number: US-ASTRAZENECA-2011SE47195

PATIENT
  Sex: Female

DRUGS (1)
  1. NEXIUM [Suspect]
     Dosage: TWICE A DAY
     Route: 048

REACTIONS (4)
  - ABDOMINAL DISCOMFORT [None]
  - BURN OESOPHAGEAL [None]
  - BREAST CANCER [None]
  - OESOPHAGEAL DISCOMFORT [None]
